FAERS Safety Report 16977814 (Version 2)
Quarter: 2019Q4

REPORT INFORMATION
  Report Type: Spontaneous
  Country: BG (occurrence: BG)
  Receive Date: 20191031
  Receipt Date: 20191201
  Transmission Date: 20200122
  Serious: Yes (Other)
  Sender: FDA-Public Use
  Company Number: BG-ACCORD-159154

PATIENT
  Age: 64 Year
  Sex: Female
  Weight: 58 kg

DRUGS (17)
  1. FENPIVERINIUM BROMIDE\METAMIZOLE SODIUM\PITOFENONE HYDROCHLORIDE [Concomitant]
     Active Substance: FENPIVERINIUM BROMIDE\METAMIZOLE SODIUM\PITOFENONE HYDROCHLORIDE
     Dosage: 1 DF, AS NECESSARY ( SOLUTION FOR INJECTION)4 DF, 4 TIMES DAILY
  2. HYOSCINE BUTYLBROMIDE/METAMIZOLE SODIUM [Concomitant]
     Dosage: STRENGTH 10 MG
  3. FUROSEMIDE. [Suspect]
     Active Substance: FUROSEMIDE
     Indication: PRODUCT USED FOR UNKNOWN INDICATION
     Dosage: STRENGTH 10 MG/ML, ONCE,AS  20 MG, SINGLE
     Route: 030
     Dates: start: 20181204, end: 20181204
  4. DIAPREL MR [Concomitant]
     Active Substance: GLICLAZIDE
     Dosage: STRENGTH 60 MG30 MG, ONCE DAILY
  5. HYOSCINE BUTYLBROMIDE/METAMIZOLE SODIUM [Concomitant]
     Dosage: STRENGTH 20 MG/ML10 MG, 6 TIMES DAILY
  6. AERIUS [Concomitant]
     Dosage: 5 MG, UNK
  7. CHLOPHAZOLIN [Suspect]
     Active Substance: CLONIDINE HYDROCHLORIDE
     Indication: BLOOD PRESSURE INCREASED
     Dosage: STRENGTH:0.150 MG/ML  ,150 MCG/ML, SINGLE
     Route: 030
     Dates: start: 20181204, end: 20181204
  8. NO-SPA [Concomitant]
     Active Substance: DROTAVERINE HYDROCHLORIDE
     Dosage: STRENGTH 40 MG,40 MG, 6 TIMES DAILY
  9. TENOFOVIR DISOPROXIL [Concomitant]
     Active Substance: TENOFOVIR DISOPROXIL
     Dosage: STRENGTH 245MG,245 MG, ONCE DAILY
  10. KREON 25000 [Concomitant]
     Active Substance: PANCRELIPASE
     Dosage: 3 DF, 2 TIMES DAILY
  11. CONTROLOC [Concomitant]
     Active Substance: PANTOPRAZOLE SODIUM
     Dosage: STRENGTH 40 MG,40 MG, ONCE DAILY
  12. BISOGAMMA [Concomitant]
     Active Substance: BISOPROLOL FUMARATE
     Dosage: STRENGTH 5 MG, ONCE DAILY
  13. NO-SPA [Concomitant]
     Active Substance: DROTAVERINE HYDROCHLORIDE
     Dosage: STRENGTH 20 MG/ML 1 DF, AS NECESSARY
  14. URSOFALK [Concomitant]
     Active Substance: URSODIOL
     Dosage: 500 MG, ONCE DAILY
  15. FENPIVERINIUM BROMIDE\METAMIZOLE SODIUM\PITOFENONE HYDROCHLORIDE [Concomitant]
     Active Substance: FENPIVERINIUM BROMIDE\METAMIZOLE SODIUM\PITOFENONE HYDROCHLORIDE
     Dosage: 1 DF, AS NECESSARY ( SOLUTION FOR INJECTION)4 DF, 4 TIMES DAILY
  16. DIROTON [Concomitant]
     Active Substance: LISINOPRIL
     Dosage: STRENGTH 10 MG,10 MG, ONCE DAILY
  17. HYOSCINE BUTYLBROMIDE/METAMIZOLE SODIUM [Concomitant]
     Dosage: 1 DF, AS NECESSARY

REACTIONS (12)
  - Eye irritation [Recovered/Resolved]
  - Tinnitus [Recovered/Resolved]
  - Pancreatitis [Not Recovered/Not Resolved]
  - Dry mouth [Recovered/Resolved]
  - Muscle spasms [Recovered/Resolved]
  - Dizziness [Recovered/Resolved]
  - Amylase increased [Recovered/Resolved]
  - Myalgia [Recovered/Resolved]
  - Loss of consciousness [Recovered/Resolved]
  - Fatigue [Recovered/Resolved]
  - Thirst [Recovered/Resolved]
  - Lipase increased [Recovered/Resolved]

NARRATIVE: CASE EVENT DATE: 20181204
